FAERS Safety Report 21964238 (Version 1)
Quarter: 2023Q1

REPORT INFORMATION
  Report Type: Spontaneous
  Country: US (occurrence: None)
  Receive Date: 20230206
  Receipt Date: 20230206
  Transmission Date: 20230418
  Serious: Yes (Life-Threatening, Other)
  Sender: FDA-Public Use
  Company Number: None

PATIENT
  Age: 54 Year
  Sex: Female
  Weight: 69.3 kg

DRUGS (10)
  1. PAXLOVID [Suspect]
     Active Substance: NIRMATRELVIR\RITONAVIR
     Indication: COVID-19
     Dosage: OTHER QUANTITY : 3 TABLET(S);?FREQUENCY : TWICE A DAY;?
     Route: 048
     Dates: start: 20230125, end: 20230127
  2. TESTOSTERONE [Concomitant]
     Active Substance: TESTOSTERONE
  3. PROGESTERONE [Concomitant]
     Active Substance: PROGESTERONE
  4. ESTRADIOL [Concomitant]
     Active Substance: ESTRADIOL
  5. ZINC [Concomitant]
     Active Substance: ZINC
  6. VIT D/K2 [Concomitant]
  7. VITAMIN C [Concomitant]
     Active Substance: ASCORBIC ACID
  8. LYSINE [Concomitant]
     Active Substance: LYSINE
  9. OLEA EUROPAEA LEAF [Concomitant]
     Active Substance: OLEA EUROPAEA LEAF
  10. OIL OF OREGANO [Concomitant]

REACTIONS (6)
  - Rash [None]
  - Urticaria [None]
  - Blister [None]
  - Lip exfoliation [None]
  - Wheezing [None]
  - Cardiac disorder [None]

NARRATIVE: CASE EVENT DATE: 20230127
